FAERS Safety Report 7634679-8 (Version None)
Quarter: 2011Q3

REPORT INFORMATION
  Report Type: 
  Country: None (occurrence: None)
  Receive Date: 20110725
  Receipt Date: 20110720
  Transmission Date: 20111222
  Serious: Yes (Other)
  Sender: FDA-Public Use
  Company Number: US-ABBOTT-09P-163-0496648-00

PATIENT
  Sex: Male
  Weight: 112.59 kg

DRUGS (14)
  1. FLOMAX [Concomitant]
     Indication: PROSTATOMEGALY
  2. METHOTREXATE [Concomitant]
     Indication: PSORIATIC ARTHROPATHY
     Route: 048
  3. HUMIRA [Suspect]
     Indication: PSORIASIS
  4. FOLIC ACID [Concomitant]
     Indication: PSORIATIC ARTHROPATHY
  5. HUMIRA [Suspect]
     Indication: RHEUMATOID ARTHRITIS
     Route: 058
     Dates: start: 20050101
  6. HUMIRA [Suspect]
     Indication: RHEUMATOID ARTHRITIS
     Route: 058
     Dates: end: 20081201
  7. ACTONEL [Concomitant]
     Indication: BONE LOSS
  8. CALCIUM CARBONATE [Concomitant]
     Indication: ROUTINE HEALTH MAINTENANCE
  9. HYTRIN [Concomitant]
     Indication: PROSTATOMEGALY
  10. HUMIRA [Suspect]
     Indication: PSORIASIS
  11. AVODART [Concomitant]
     Indication: PROSTATOMEGALY
  12. TOPICAL CREAMS [Concomitant]
     Indication: PSORIATIC ARTHROPATHY
  13. VIAGRA [Concomitant]
     Indication: ERECTILE DYSFUNCTION
  14. CENTRUM [Concomitant]
     Indication: ROUTINE HEALTH MAINTENANCE

REACTIONS (4)
  - INJECTION SITE PAIN [None]
  - LYMPHADENOPATHY [None]
  - NASOPHARYNGITIS [None]
  - HODGKIN'S DISEASE [None]
